FAERS Safety Report 11462157 (Version 1)
Quarter: 2015Q3

REPORT INFORMATION
  Report Type: Spontaneous
  Country: US (occurrence: US)
  Receive Date: 20150831
  Receipt Date: 20150831
  Transmission Date: 20151125
  Serious: No
  Sender: FDA-Public Use
  Company Number: US-ELI_LILLY_AND_COMPANY-US201010001590

PATIENT
  Sex: Female

DRUGS (7)
  1. BABY ASPIRIN [Concomitant]
     Active Substance: ASPIRIN
  2. PAXIL [Concomitant]
     Active Substance: PAROXETINE HYDROCHLORIDE
  3. CYMBALTA [Suspect]
     Active Substance: DULOXETINE HYDROCHLORIDE
     Indication: DEPRESSION
     Dosage: 30 MG, UNK
     Dates: start: 20100913, end: 20100917
  4. ATIVAN [Concomitant]
     Active Substance: LORAZEPAM
  5. ATENOLOL. [Concomitant]
     Active Substance: ATENOLOL
  6. XANAX [Concomitant]
     Active Substance: ALPRAZOLAM
  7. SYNTHROID [Concomitant]
     Active Substance: LEVOTHYROXINE SODIUM

REACTIONS (9)
  - Vomiting [Unknown]
  - Feeling abnormal [Recovered/Resolved]
  - Irritable bowel syndrome [Unknown]
  - Malaise [Unknown]
  - Limb discomfort [Recovered/Resolved]
  - Staring [Recovered/Resolved]
  - Paraesthesia [Recovered/Resolved]
  - Abasia [Unknown]
  - Dizziness [Recovered/Resolved]
